FAERS Safety Report 11026456 (Version 1)
Quarter: 2015Q2

REPORT INFORMATION
  Report Type: Report from Study
  Country: DE (occurrence: DE)
  Receive Date: 20150414
  Receipt Date: 20150414
  Transmission Date: 20150821
  Serious: Yes (Other)
  Sender: FDA-Public Use
  Company Number: PHHY2015DE022856

PATIENT
  Sex: Female

DRUGS (15)
  1. CANDESARTAN [Concomitant]
     Active Substance: CANDESARTAN
     Indication: HYPERTENSION
     Dosage: 8 MG, QD
     Route: 048
     Dates: start: 20130211, end: 20130602
  2. ACICLOVIR [Concomitant]
     Active Substance: ACYCLOVIR
     Indication: ORAL HERPES
     Dosage: 800 MG, TID
     Route: 048
     Dates: start: 20130211, end: 20130218
  3. VISIPAQUE [Concomitant]
     Active Substance: IODIXANOL
     Indication: PRODUCT USED FOR UNKNOWN INDICATION
     Dosage: 100 ML, UNK
     Route: 042
  4. VIGANTOLETTEN [Concomitant]
     Active Substance: CHOLECALCIFEROL
     Indication: VITAMIN D DEFICIENCY
     Dosage: 1000 IU, QD
     Route: 048
     Dates: start: 20130424
  5. OPIPRAMOL [Concomitant]
     Active Substance: OPIPRAMOL
     Indication: DEPRESSION
     Dosage: 100 MG, QD
     Route: 048
     Dates: start: 201212, end: 20130215
  6. IBUPROFEN. [Concomitant]
     Active Substance: IBUPROFEN
     Indication: PRODUCT USED FOR UNKNOWN INDICATION
     Dosage: UNK UNK, PRN
     Route: 065
  7. GILENYA [Suspect]
     Active Substance: FINGOLIMOD HYDROCHLORIDE
     Dosage: 0.5 MG, QD
     Route: 048
     Dates: start: 20130205
  8. LISINOPRIL. [Concomitant]
     Active Substance: LISINOPRIL
     Indication: HYPERTENSION
     Dosage: 20 MG, QD
     Route: 048
     Dates: start: 2003
  9. ALLOPURINOL. [Concomitant]
     Active Substance: ALLOPURINOL
     Indication: HYPERURICAEMIA
     Dosage: 100 MG, QD
     Route: 048
     Dates: start: 20130211
  10. SIMVASTATIN. [Concomitant]
     Active Substance: SIMVASTATIN
     Indication: HYPERCHOLESTEROLAEMIA
     Dosage: 20 MG, QD
     Route: 048
     Dates: start: 2003
  11. CELEBREX [Concomitant]
     Active Substance: CELECOXIB
     Indication: ARTHROPATHY
     Dosage: 100 MG, QD
     Route: 048
     Dates: end: 20130320
  12. GILENYA [Suspect]
     Active Substance: FINGOLIMOD HYDROCHLORIDE
     Indication: MULTIPLE SCLEROSIS
     Dosage: 0.5 MG, UNK
     Route: 048
     Dates: start: 20130128, end: 20130204
  13. MYDOCALM [Concomitant]
     Active Substance: TOLPERISONE
     Indication: MUSCLE TIGHTNESS
     Dosage: 150 MG (50 MG, 3X1), QD
     Route: 048
     Dates: start: 201212
  14. BISOPROLOL [Concomitant]
     Active Substance: BISOPROLOL
     Indication: HYPERTENSION
     Dosage: 5 MG, QD
     Route: 048
     Dates: start: 2003
  15. COLCHYSAT [Concomitant]
     Indication: GOUT
     Dosage: 0.5 MG, UNK, 3 TO 4 DAILY
     Route: 048
     Dates: start: 20130424, end: 20130430

REACTIONS (5)
  - Hepatic steatosis [Unknown]
  - Hepatic enzyme increased [Not Recovered/Not Resolved]
  - Hepatomegaly [Unknown]
  - Renal cyst [Unknown]
  - Osteoarthritis [Unknown]

NARRATIVE: CASE EVENT DATE: 20140818
